FAERS Safety Report 5380968-X (Version None)
Quarter: 2007Q3

REPORT INFORMATION
  Report Type: 
  Country: None (occurrence: None)
  Receive Date: 20070706
  Receipt Date: 20070704
  Transmission Date: 20080115
  Serious: Yes (Life-Threatening)
  Sender: FDA-Public Use
  Company Number: FR-ASTRAZENECA-2007CG01016

PATIENT
  Age: 11682 Day
  Sex: Female

DRUGS (11)
  1. XYLOCAINE [Suspect]
     Indication: ANAESTHESIA
     Route: 042
     Dates: start: 20040319, end: 20040319
  2. DIPRIVAN [Suspect]
     Indication: GENERAL ANAESTHESIA
     Route: 042
     Dates: start: 20040319, end: 20040319
  3. SUFENTA [Suspect]
     Indication: GENERAL ANAESTHESIA
     Route: 042
     Dates: start: 20040319, end: 20040319
  4. TRACRIUM [Suspect]
     Indication: GENERAL ANAESTHESIA
     Route: 042
     Dates: start: 20040319, end: 20040319
  5. HYPNOVEL [Suspect]
     Indication: GENERAL ANAESTHESIA
     Route: 042
     Dates: start: 20040319, end: 20040319
  6. ZYRTEC [Concomitant]
     Indication: URTICARIA CHRONIC
  7. ZYRTEC [Concomitant]
     Indication: URTICARIA PRESSURE
  8. CETIRIZINE HCL [Concomitant]
     Indication: URTICARIA CHRONIC
  9. CETIRIZINE HCL [Concomitant]
     Indication: URTICARIA PRESSURE
  10. SUMATRIPTAN SUCCINATE [Concomitant]
     Indication: MIGRAINE
  11. ATARAX [Concomitant]
     Indication: PREMEDICATION
     Route: 048
     Dates: start: 20040319, end: 20040319

REACTIONS (3)
  - ANAPHYLACTOID REACTION [None]
  - BRONCHOSPASM [None]
  - CIRCULATORY COLLAPSE [None]
